FAERS Safety Report 12976741 (Version 1)
Quarter: 2016Q4

REPORT INFORMATION
  Report Type: Spontaneous
  Country: NL (occurrence: NL)
  Receive Date: 20161128
  Receipt Date: 20161128
  Transmission Date: 20170207
  Serious: Yes (Other)
  Sender: FDA-Public Use
  Company Number: PHHY2016NL159399

PATIENT
  Age: 57 Year
  Sex: Female

DRUGS (2)
  1. PAZOPANIB [Suspect]
     Active Substance: PAZOPANIB
     Indication: ENDOMETRIAL ADENOCARCINOMA
     Dosage: 800 MG, QD
     Route: 065
  2. PAZOPANIB [Suspect]
     Active Substance: PAZOPANIB
     Dosage: 600 MG, QD
     Route: 065

REACTIONS (8)
  - Palmar erythema [Unknown]
  - Enterocutaneous fistula [Unknown]
  - Fistula discharge [Unknown]
  - Abdominal wall wound [Unknown]
  - Decreased appetite [Unknown]
  - Tumour necrosis [Unknown]
  - Diarrhoea [Unknown]
  - Hypertension [Unknown]
